FAERS Safety Report 4740089-3 (Version None)
Quarter: 2005Q3

REPORT INFORMATION
  Report Type: 
  Country: None (occurrence: None)
  Receive Date: 20050810
  Receipt Date: 20040621
  Transmission Date: 20060218
  Serious: No
  Sender: FDA-Public Use
  Company Number: US-GLAXOSMITHKLINE-A0517627A

PATIENT
  Sex: Male
  Weight: 65 kg

DRUGS (2)
  1. PAXIL [Suspect]
     Indication: ANXIETY
     Dosage: 20MG PER DAY
     Route: 048
     Dates: end: 20030101
  2. INDERAL [Concomitant]
     Dosage: 10MG AS REQUIRED
     Route: 048
     Dates: start: 20031101

REACTIONS (6)
  - DECREASED APPETITE [None]
  - DRUG WITHDRAWAL SYNDROME [None]
  - FATIGUE [None]
  - INSOMNIA [None]
  - PERFORMANCE FEAR [None]
  - SEXUAL DYSFUNCTION [None]
